FAERS Safety Report 24783981 (Version 2)
Quarter: 2025Q1

REPORT INFORMATION
  Report Type: Spontaneous
  Country: FR (occurrence: FR)
  Receive Date: 20241227
  Receipt Date: 20250128
  Transmission Date: 20250408
  Serious: Yes (Other)
  Sender: ALEXION PHARMACEUTICALS
  Company Number: FR-SA-2024SA380911

PATIENT
  Age: 11 Month
  Weight: 7.66 kg

DRUGS (2)
  1. BEYFORTUS [Suspect]
     Active Substance: NIRSEVIMAB-ALIP
     Indication: Immunisation
     Dosage: 100 MILLIGRAM, QD
     Route: 065
  2. CHOLECALCIFEROL [Concomitant]
     Active Substance: CHOLECALCIFEROL
     Dosage: 2.000DROP (1/12 MILLILITRE) QD

REACTIONS (5)
  - Respiratory syncytial virus bronchiolitis [Recovered/Resolved with Sequelae]
  - Wheezing [Unknown]
  - Rales [Unknown]
  - Use of accessory respiratory muscles [Unknown]
  - Decreased appetite [Unknown]
